FAERS Safety Report 12545371 (Version 2)
Quarter: 2016Q3

REPORT INFORMATION
  Report Type: Spontaneous
  Country: US (occurrence: US)
  Receive Date: 20160711
  Receipt Date: 20160719
  Transmission Date: 20161109
  Serious: Yes (Hospitalization, Other)
  Sender: FDA-Public Use
  Company Number: US-SMITH AND NEPHEW, INC-2016SMT00563

PATIENT
  Age: 69 Year
  Sex: Male
  Weight: 104.31 kg

DRUGS (11)
  1. SENNA WITH DOCUSATE [Concomitant]
     Dosage: 1 TABLETS, 2X/DAY AS NEEDED
     Route: 048
  2. REGRANEX [Suspect]
     Active Substance: BECAPLERMIN
     Indication: WOUND
     Dosage: UNK UNK, 1X/DAY
     Route: 061
     Dates: start: 2016
  3. TESTOSTERONE. [Concomitant]
     Active Substance: TESTOSTERONE
     Dosage: UNK, 2X/MONTH
     Route: 030
  4. SIMVASTATIN. [Concomitant]
     Active Substance: SIMVASTATIN
     Dosage: 40 MG, 1X/DAY
     Route: 048
  5. LANTUS [Concomitant]
     Active Substance: INSULIN GLARGINE
     Dosage: 40 U, 2X/DAY
  6. MIRALAX [Concomitant]
     Active Substance: POLYETHYLENE GLYCOL 3350
     Dosage: 17 G, 1X/DAY AS NEEDED
     Route: 048
  7. HUMALOG [Concomitant]
     Active Substance: INSULIN LISPRO
     Dosage: 5 U, 2X/DAY
  8. HUMALOG [Concomitant]
     Active Substance: INSULIN LISPRO
     Dosage: SLIDING SCALE
  9. METFORMIN [Concomitant]
     Active Substance: METFORMIN HYDROCHLORIDE
     Dosage: 1000 MG, 2X/DAY
     Route: 048
  10. IBUPROFEN. [Concomitant]
     Active Substance: IBUPROFEN
     Dosage: 2 TABLETS, 4X/DAY AS NEEDED
     Route: 048
  11. HUMALOG [Concomitant]
     Active Substance: INSULIN LISPRO
     Dosage: 10 U, 1X/DAY

REACTIONS (5)
  - Cellulitis [Recovering/Resolving]
  - Toe amputation [Recovered/Resolved]
  - Abscess [Recovering/Resolving]
  - Blood glucose decreased [Unknown]
  - Wound infection [Recovering/Resolving]

NARRATIVE: CASE EVENT DATE: 20160622
